FAERS Safety Report 6274519-5 (Version None)
Quarter: 2009Q3

REPORT INFORMATION
  Report Type: 
  Country: None (occurrence: None)
  Receive Date: 20090720
  Receipt Date: 20090709
  Transmission Date: 20100115
  Serious: Yes (Death, Hospitalization)
  Sender: FDA-Public Use
  Company Number: TW-BAXTER-2009BH010463

PATIENT
  Age: 88 Year
  Sex: Female

DRUGS (2)
  1. DIANEAL [Suspect]
     Indication: RENAL FAILURE CHRONIC
     Route: 033
     Dates: start: 20090601
  2. DIANEAL [Suspect]
     Route: 033
     Dates: start: 20090501, end: 20090601

REACTIONS (1)
  - CARDIOVASCULAR DISORDER [None]
